FAERS Safety Report 7874855-2 (Version None)
Quarter: 2011Q4

REPORT INFORMATION
  Report Type: 
  Country: None (occurrence: None)
  Receive Date: 20111031
  Receipt Date: 20111024
  Transmission Date: 20120403
  Serious: Yes (Other)
  Sender: FDA-Public Use
  Company Number: CH-JNJFOC-20111005402

PATIENT
  Age: 35 Year
  Sex: Female

DRUGS (2)
  1. PALIPERIDONE [Suspect]
     Route: 030
     Dates: start: 20110929
  2. PALIPERIDONE [Suspect]
     Indication: SCHIZOAFFECTIVE DISORDER
     Route: 030
     Dates: start: 20111007

REACTIONS (3)
  - WEIGHT INCREASED [None]
  - BULIMIA NERVOSA [None]
  - INCREASED APPETITE [None]
